FAERS Safety Report 11249891 (Version 1)
Quarter: 2015Q3

REPORT INFORMATION
  Report Type: Spontaneous
  Country: US (occurrence: US)
  Receive Date: 20150708
  Receipt Date: 20150708
  Transmission Date: 20151125
  Serious: Yes (Other)
  Sender: FDA-Public Use
  Company Number: US-ELI_LILLY_AND_COMPANY-US201009004000

PATIENT
  Age: 78 Year
  Sex: Male

DRUGS (3)
  1. ZYVOX [Concomitant]
     Active Substance: LINEZOLID
     Dosage: UNK, UNKNOWN
     Route: 065
  2. ZYVOX [Concomitant]
     Active Substance: LINEZOLID
     Dosage: UNK, UNKNOWN
     Route: 065
     Dates: start: 20100820, end: 20100829
  3. GEMZAR [Suspect]
     Active Substance: GEMCITABINE HYDROCHLORIDE
     Indication: PANCREATIC CARCINOMA
     Dosage: 1000 MG/M2, DAYS 1, 8 AND 15, EVERY 4 WEEKS
     Route: 065
     Dates: start: 20100428

REACTIONS (1)
  - Disease progression [Unknown]
